FAERS Safety Report 13807012 (Version 4)
Quarter: 2018Q1

REPORT INFORMATION
  Report Type: Report from Study
  Country: US (occurrence: US)
  Receive Date: 20170728
  Receipt Date: 20180125
  Transmission Date: 20180508
  Serious: No
  Sender: FDA-Public Use
  Company Number: US-AMGEN-USASL2017101002

PATIENT
  Age: 79 Year
  Sex: Male

DRUGS (2)
  1. REPATHA [Suspect]
     Active Substance: EVOLOCUMAB
     Indication: LOW DENSITY LIPOPROTEIN INCREASED
     Dosage: 140 MG, Q2WK (TWICE MONTHLY)
     Route: 065
     Dates: end: 201610
  2. REPATHA [Suspect]
     Active Substance: EVOLOCUMAB
     Dosage: 140 MG, Q2WK (TWICE MONTHLY)
     Route: 065
     Dates: start: 201612

REACTIONS (2)
  - Malaise [Unknown]
  - Bronchitis [Unknown]

NARRATIVE: CASE EVENT DATE: 201705
